FAERS Safety Report 25670020 (Version 1)
Quarter: 2025Q3

REPORT INFORMATION
  Report Type: Spontaneous
  Country: US (occurrence: None)
  Receive Date: 20250811
  Receipt Date: 20250811
  Transmission Date: 20251021
  Serious: Yes (Other)
  Sender: FDA-CTU
  Company Number: None

PATIENT
  Sex: Female

DRUGS (11)
  1. XOLAIR [Suspect]
     Active Substance: OMALIZUMAB
     Dosage: FREQUENCY : MONTHLY;?
     Route: 048
     Dates: start: 20250429
  2. ASPIRIN [Concomitant]
     Active Substance: ASPIRIN
  3. BENADRYL CAP [Concomitant]
  4. CALCIUM FOR CHWWOMEN [Concomitant]
  5. COMBIVENT AER 20-100 [Concomitant]
  6. DIPHENHYDRAM CAP [Concomitant]
  7. EPIPEN 2-PAK INJ 0.3MG [Concomitant]
  8. FAMOTIDINE [Concomitant]
     Active Substance: FAMOTIDINE
  9. FLECAINIDE [Concomitant]
     Active Substance: FLECAINIDE
  10. FLUTICASONE SPR [Concomitant]
  11. FOLIC ACID TAB [Concomitant]

REACTIONS (2)
  - Nonspecific reaction [None]
  - Skin cancer [None]
